FAERS Safety Report 20639299 (Version 1)
Quarter: 2022Q1

REPORT INFORMATION
  Report Type: Spontaneous
  Country: US (occurrence: US)
  Receive Date: 20220326
  Receipt Date: 20220326
  Transmission Date: 20220424
  Serious: No
  Sender: FDA-Public Use
  Company Number: US-TEVA-2022-US-2013835

PATIENT
  Sex: Male

DRUGS (1)
  1. CLONIDINE [Suspect]
     Active Substance: CLONIDINE
     Dosage: STRENGTH: 0.2 MG/DAY
     Route: 062

REACTIONS (2)
  - Wrong technique in product usage process [Unknown]
  - Hypotension [Unknown]
